FAERS Safety Report 6201029-3 (Version None)
Quarter: 2009Q2

REPORT INFORMATION
  Report Type: 
  Country: None (occurrence: None)
  Receive Date: 20090526
  Receipt Date: 20090518
  Transmission Date: 20091009
  Serious: Yes (Other)
  Sender: FDA-Public Use
  Company Number: US-ELI_LILLY_AND_COMPANY-US200905003569

PATIENT
  Sex: Male

DRUGS (4)
  1. HUMULIN R [Suspect]
  2. HUMULIN N [Suspect]
  3. CIPROFLOXACIN [Concomitant]
     Indication: SKIN INFECTION
     Dosage: 750 MG, 2/D
  4. AMOXI-CLAVULAN [Concomitant]
     Indication: SKIN INFECTION
     Dosage: UNK, 2/D

REACTIONS (6)
  - BLOOD GLUCOSE INCREASED [None]
  - EXPIRED DRUG ADMINISTERED [None]
  - LOCALISED INFECTION [None]
  - NAUSEA [None]
  - SKIN INFECTION [None]
  - VOMITING [None]
